FAERS Safety Report 7463141-0 (Version None)
Quarter: 2011Q2

REPORT INFORMATION
  Report Type: 
  Country: None (occurrence: None)
  Receive Date: 20110506
  Receipt Date: 20110503
  Transmission Date: 20111010
  Serious: Yes (Other)
  Sender: FDA-Public Use
  Company Number: US-PFIZER INC-2010116149

PATIENT
  Sex: Female

DRUGS (1)
  1. LIPITOR [Suspect]
     Indication: HYPERLIPIDAEMIA
     Dosage: 10 MG, 1X/DAY
     Dates: start: 20020101

REACTIONS (10)
  - RESTLESSNESS [None]
  - MEMORY IMPAIRMENT [None]
  - INSOMNIA [None]
  - FRUSTRATION [None]
  - TENSION [None]
  - ANGER [None]
  - MENTAL IMPAIRMENT [None]
  - OBSESSIVE THOUGHTS [None]
  - DISTURBANCE IN ATTENTION [None]
  - PSYCHIATRIC SYMPTOM [None]
